FAERS Safety Report 5464917-1 (Version None)
Quarter: 2007Q3

REPORT INFORMATION
  Report Type: 
  Country: None (occurrence: None)
  Receive Date: 20070921
  Receipt Date: 20070912
  Transmission Date: 20080115
  Serious: Yes (Hospitalization)
  Sender: FDA-Public Use
  Company Number: IT-PFIZER INC-2007076982

PATIENT
  Sex: Female

DRUGS (7)
  1. TOTALIP [Suspect]
     Indication: DYSLIPIDAEMIA
     Route: 048
     Dates: start: 20070330, end: 20070623
  2. PLAVIX [Suspect]
     Indication: ANTICOAGULANT THERAPY
     Route: 048
     Dates: start: 20070330, end: 20070623
  3. RABEPRAZOLE SODIUM [Suspect]
     Indication: PROPHYLAXIS AGAINST GASTROINTESTINAL ULCER
     Route: 048
     Dates: start: 20070330, end: 20070623
  4. TRIATEC [Concomitant]
     Route: 048
     Dates: start: 20070330, end: 20070623
  5. ASPIRIN [Concomitant]
     Route: 048
  6. ALIFLUS DISKUS [Concomitant]
     Dosage: TEXT:50/500 X 2
     Route: 055
  7. MOTILEX [Concomitant]
     Dates: start: 20061201, end: 20070618

REACTIONS (6)
  - AMNESIA [None]
  - CONFUSIONAL STATE [None]
  - DYSLEXIA [None]
  - GAIT DISTURBANCE [None]
  - HYPOKINESIA [None]
  - TREMOR [None]
